FAERS Safety Report 9271754 (Version 2)
Quarter: 2013Q2

REPORT INFORMATION
  Report Type: Report from Study
  Country: TW (occurrence: TW)
  Receive Date: 20130506
  Receipt Date: 20130515
  Transmission Date: 20140414
  Serious: Yes (Disabling)
  Sender: FDA-Public Use
  Company Number: PHHY2013TW041401

PATIENT
  Age: 30 Year
  Sex: Male

DRUGS (17)
  1. AMN107 [Suspect]
     Indication: CHRONIC MYELOID LEUKAEMIA
     Dosage: 800 MG, DAILY
     Route: 048
     Dates: start: 20110713, end: 20121120
  2. GLUCOPHAGE [Concomitant]
     Indication: TYPE 2 DIABETES MELLITUS
     Dosage: UNK UKN, UNK
  3. NOVOMIX [Concomitant]
     Indication: TYPE 2 DIABETES MELLITUS
     Dosage: UNK UKN, UNK
  4. DEFENSE [Concomitant]
     Indication: PROPHYLAXIS
     Dosage: UNK UKN, UNK
     Dates: start: 20121113
  5. PARACETAMOL [Concomitant]
     Indication: HEADACHE
     Dosage: UNK UKN, UNK
     Dates: start: 20121117, end: 20121117
  6. PARACETAMOL [Concomitant]
     Dosage: UNK
     Dates: start: 20121222, end: 20121222
  7. NOVAMIN [Concomitant]
     Indication: VOMITING
     Dosage: UNK UKN, UNK
     Dates: start: 20121117, end: 20121117
  8. FELUNAMIN [Concomitant]
     Indication: DECREASED APPETITE
     Dosage: UNK UKN, UNK
     Dates: start: 20121117, end: 20121117
  9. NORGESIC N [Concomitant]
     Indication: HEADACHE
     Dosage: UNK UKN, UNK
     Dates: start: 20121117, end: 20121120
  10. NORGESIC N [Concomitant]
     Dosage: UNK
     Dates: start: 20121222, end: 20121225
  11. SINPHADOL [Concomitant]
     Indication: DIZZINESS
     Dosage: UNK UKN, UNK
     Dates: start: 20121205, end: 20121219
  12. SINPHADOL [Concomitant]
     Dosage: UNK
     Dates: start: 20130108
  13. SUZIN//DIPYRIDAMOLE [Concomitant]
     Indication: DIZZINESS
     Dosage: UNK UKN, UNK
     Dates: start: 20121205, end: 20121219
  14. SUZIN//DIPYRIDAMOLE [Concomitant]
     Dosage: UNK
     Dates: start: 20130108
  15. TRAMAL [Concomitant]
     Indication: HEADACHE
     Dosage: UNK UKN, UNK
     Dates: start: 20121222, end: 20121222
  16. PREDNISOLONE [Concomitant]
     Indication: DIZZINESS
     Dosage: UNK UKN, UNK
     Dates: start: 20130123, end: 20130206
  17. WELLPION [Concomitant]
     Indication: PROPHYLAXIS
     Dosage: UNK UKN, UNK
     Dates: start: 20130123, end: 20130206

REACTIONS (1)
  - Sudden hearing loss [Recovered/Resolved with Sequelae]
